FAERS Safety Report 6872677-2 (Version None)
Quarter: 2010Q3

REPORT INFORMATION
  Report Type: 
  Country: None (occurrence: None)
  Receive Date: 20100723
  Receipt Date: 20081026
  Transmission Date: 20110219
  Serious: No
  Sender: FDA-Public Use
  Company Number: US-PFIZER INC-2008090761

PATIENT
  Sex: Female
  Weight: 61.363 kg

DRUGS (4)
  1. CHANTIX [Suspect]
     Indication: EX-TOBACCO USER
     Dates: start: 20081018
  2. LEVOXYL [Concomitant]
  3. LEXAPRO [Concomitant]
  4. TRAZODONE [Concomitant]

REACTIONS (5)
  - ABDOMINAL PAIN UPPER [None]
  - ASTHENIA [None]
  - DYSGEUSIA [None]
  - NAUSEA [None]
  - TREMOR [None]
